FAERS Safety Report 24916078 (Version 1)
Quarter: 2025Q1

REPORT INFORMATION
  Report Type: Other
  Country: AU (occurrence: AU)
  Receive Date: 20250203
  Receipt Date: 20250203
  Transmission Date: 20250409
  Serious: Yes (Hospitalization, Other)
  Sender: WES PHARMA INC
  Company Number: AU-WES Pharma Inc-2170361

PATIENT
  Age: 4 Decade
  Sex: Female

DRUGS (1)
  1. OXYCODONE HYDROCHLORIDE [Suspect]
     Active Substance: OXYCODONE HYDROCHLORIDE
     Indication: Product used for unknown indication

REACTIONS (4)
  - Pulmonary hypertension [Recovered/Resolved]
  - Wrong technique in product usage process [Unknown]
  - Reaction to excipient [Recovered/Resolved]
  - Pulmonary granuloma [Recovered/Resolved]
